FAERS Safety Report 14430387 (Version 1)
Quarter: 2018Q1

REPORT INFORMATION
  Report Type: Spontaneous
  Country: US (occurrence: US)
  Receive Date: 20180124
  Receipt Date: 20180124
  Transmission Date: 20180509
  Serious: Yes (Death, Life-Threatening, Other)
  Sender: FDA-Public Use
  Company Number: US-ROCHE-2017832

PATIENT
  Age: 47 Year
  Sex: Female

DRUGS (3)
  1. TISAGENLECLEUCEL. [Suspect]
     Active Substance: TISAGENLECLEUCEL
     Indication: DIFFUSE LARGE B-CELL LYMPHOMA
     Route: 041
     Dates: start: 20160921
  2. BENDAMUSTINE [Concomitant]
     Active Substance: BENDAMUSTINE
     Route: 065
     Dates: start: 20160913, end: 20160914
  3. ACTEMRA [Suspect]
     Active Substance: TOCILIZUMAB
     Indication: CYTOKINE RELEASE SYNDROME
     Route: 042
     Dates: start: 20160927

REACTIONS (6)
  - Cardiac arrest [Not Recovered/Not Resolved]
  - Multiple organ dysfunction syndrome [Fatal]
  - Encephalopathy [Not Recovered/Not Resolved]
  - Mental status changes [Not Recovered/Not Resolved]
  - Diffuse large B-cell lymphoma [Fatal]
  - Abdominal mass [Fatal]

NARRATIVE: CASE EVENT DATE: 20160930
